FAERS Safety Report 10973746 (Version 2)
Quarter: 2015Q4

REPORT INFORMATION
  Report Type: Report from Study
  Country: CA (occurrence: CA)
  Receive Date: 20150401
  Receipt Date: 20151123
  Transmission Date: 20160304
  Serious: Yes (Hospitalization, Other)
  Sender: FDA-Public Use
  Company Number: PHHY2012CA123557

PATIENT
  Sex: Male

DRUGS (3)
  1. TASIGNA [Suspect]
     Active Substance: NILOTINIB
     Dosage: UNK
     Route: 048
  2. TYLENOL ARTHRITIS PAIN [Concomitant]
     Active Substance: ACETAMINOPHEN
     Indication: RENAL FAILURE
     Dosage: UNK, BID
     Route: 048
  3. TASIGNA [Suspect]
     Active Substance: NILOTINIB
     Indication: CHRONIC MYELOID LEUKAEMIA
     Dosage: 400 MG, BID
     Route: 048
     Dates: start: 200903

REACTIONS (6)
  - Fatigue [Not Recovered/Not Resolved]
  - Renal disorder [Unknown]
  - Gastroenteritis viral [Not Recovered/Not Resolved]
  - Cerebrovascular accident [Unknown]
  - Contusion [Unknown]
  - Myalgia [Not Recovered/Not Resolved]
